FAERS Safety Report 16363249 (Version 1)
Quarter: 2019Q2

REPORT INFORMATION
  Report Type: Spontaneous
  Country: FR (occurrence: FR)
  Receive Date: 20190528
  Receipt Date: 20190528
  Transmission Date: 20190711
  Serious: Yes (Hospitalization)
  Sender: FDA-Public Use
  Company Number: FR-MYLANLABS-2019M1048803

PATIENT
  Age: 28 Year
  Sex: Female

DRUGS (8)
  1. TRAMADOL. [Suspect]
     Active Substance: TRAMADOL
     Indication: HEADACHE
     Dosage: UNK
     Route: 048
     Dates: start: 2016, end: 2016
  2. PROFENID [Suspect]
     Active Substance: KETOPROFEN
     Indication: HEADACHE
     Dosage: UNK
     Route: 048
     Dates: start: 2016, end: 2016
  3. PARACETAMOL [Suspect]
     Active Substance: ACETAMINOPHEN
     Indication: HEADACHE
     Dosage: UNK
     Route: 048
  4. URBANYL [Concomitant]
     Active Substance: CLOBAZAM
     Dosage: UNK
  5. ZEBINIX [Concomitant]
     Active Substance: ESLICARBAZEPINE ACETATE
     Dosage: UNK
  6. ACUPAN [Suspect]
     Active Substance: NEFOPAM HYDROCHLORIDE
     Indication: HEADACHE
     Dosage: UNK
     Route: 048
     Dates: start: 2016, end: 2016
  7. KEPPRA [Concomitant]
     Active Substance: LEVETIRACETAM
     Dosage: UNK
  8. IBUPROFEN. [Suspect]
     Active Substance: IBUPROFEN
     Indication: HEADACHE
     Dosage: UNK
     Route: 048

REACTIONS (2)
  - Drug abuse [Recovered/Resolved]
  - Headache [Recovered/Resolved]

NARRATIVE: CASE EVENT DATE: 201608
